FAERS Safety Report 7935294-9 (Version None)
Quarter: 2011Q4

REPORT INFORMATION
  Report Type: 
  Country: None (occurrence: None)
  Receive Date: 20111122
  Receipt Date: 20111114
  Transmission Date: 20120403
  Serious: Yes (Hospitalization)
  Sender: FDA-Public Use
  Company Number: JP-CELGENEUS-087-21880-11012821

PATIENT
  Sex: Male

DRUGS (31)
  1. REVLIMID [Suspect]
     Dosage: 25 MILLIGRAM
     Route: 048
     Dates: start: 20101222, end: 20110111
  2. REVLIMID [Suspect]
     Dosage: 15 MILLIGRAM
     Route: 048
     Dates: start: 20110511, end: 20110531
  3. ASPIRIN [Concomitant]
     Indication: PROPHYLAXIS
     Dosage: 100 MILLIGRAM
     Route: 048
     Dates: start: 20110202
  4. DEXAMETHASONE [Suspect]
     Dosage: 12 MILLIGRAM
     Route: 048
     Dates: start: 20110406, end: 20110406
  5. FAMOTIDINE [Suspect]
     Indication: PROPHYLAXIS
     Dosage: 20 MILLIGRAM
     Route: 048
     Dates: start: 20101117, end: 20110111
  6. THALED [Concomitant]
     Route: 065
  7. DEXAMETHASONE [Suspect]
     Dosage: 12 MILLIGRAM
     Route: 048
     Dates: start: 20101223, end: 20110106
  8. FAMOTIDINE [Suspect]
     Dosage: 20 MILLIGRAM
     Route: 048
     Dates: start: 20110126
  9. MUCOSTA [Concomitant]
     Indication: PROPHYLAXIS
     Dosage: 300 MILLIGRAM
     Route: 048
     Dates: start: 20110114, end: 20110121
  10. REVLIMID [Suspect]
     Dosage: 25 MILLIGRAM
     Route: 048
     Dates: start: 20110406, end: 20110412
  11. DEXAMETHASONE [Suspect]
     Indication: MULTIPLE MYELOMA
     Dosage: 12 MILLIGRAM
     Route: 048
     Dates: start: 20101125, end: 20101214
  12. REVLIMID [Suspect]
     Indication: MULTIPLE MYELOMA
     Dosage: 25 MILLIGRAM
     Route: 048
     Dates: start: 20101124, end: 20101214
  13. REVLIMID [Suspect]
     Dosage: 25 MILLIGRAM
     Route: 048
     Dates: start: 20110223, end: 20110315
  14. DEXAMETHASONE [Suspect]
     Dosage: 12 MILLIGRAM
     Route: 048
     Dates: start: 20110223, end: 20110323
  15. SULFAMETHOXAZOLE AND TRIMETHOPRIM [Suspect]
     Indication: PROPHYLAXIS
     Dosage: 1 TABLET
     Route: 048
     Dates: start: 20100430, end: 20110111
  16. NISSEKI POLYGLOBIN-N [Concomitant]
     Indication: PROPHYLAXIS
     Dosage: 5 GRAM
     Route: 041
     Dates: start: 20101222, end: 20101222
  17. GARENOXACIN MESYLATE [Concomitant]
     Indication: PROPHYLAXIS
     Dosage: 400 MILLIGRAM
     Route: 048
     Dates: start: 20110126, end: 20110315
  18. ZOVIRAX [Concomitant]
     Indication: PROPHYLAXIS
     Dosage: 200 MILLIGRAM
     Route: 048
     Dates: start: 20110217, end: 20110315
  19. ZOVIRAX [Concomitant]
     Dosage: 200 MILLIGRAM
     Route: 048
     Dates: start: 20110323, end: 20110418
  20. ZOVIRAX [Concomitant]
     Dosage: 200 MILLIGRAM
     Route: 048
     Dates: start: 20110601
  21. DEXAMETHASONE [Suspect]
     Dosage: 12 MILLIGRAM
     Route: 048
     Dates: start: 20110420, end: 20110420
  22. DEXAMETHASONE [Suspect]
     Dosage: 12 MILLIGRAM
     Route: 048
     Dates: start: 20110511, end: 20110525
  23. NISSEKI POLYGLOBIN-N [Concomitant]
     Indication: HYPOGAMMAGLOBULINAEMIA
     Dosage: 5 GRAM
     Route: 041
     Dates: start: 20110323, end: 20110323
  24. URSO 250 [Concomitant]
     Indication: PROPHYLAXIS
     Dosage: 600 MILLIGRAM
     Route: 048
     Dates: start: 20101208
  25. TAMIFLU [Concomitant]
     Route: 065
     Dates: start: 20110101, end: 20110101
  26. REVLIMID [Suspect]
     Dosage: 25 MILLIGRAM
     Route: 048
     Dates: start: 20110323, end: 20110329
  27. REVLIMID [Suspect]
     Dosage: 25 MILLIGRAM
     Route: 048
     Dates: start: 20110126, end: 20110215
  28. REVLIMID [Suspect]
     Dosage: 15 MILLIGRAM
     Route: 048
     Dates: start: 20110420, end: 20110426
  29. DEXAMETHASONE [Suspect]
     Dosage: 12 MILLIGRAM
     Route: 048
     Dates: start: 20110127, end: 20110127
  30. DEXAMETHASONE [Suspect]
     Dosage: 12 MILLIGRAM
     Route: 048
     Dates: start: 20110203, end: 20110210
  31. SULFAMETHOXAZOLE AND TRIMETHOPRIM [Suspect]
     Dosage: 1 TABLET
     Route: 048
     Dates: start: 20110126

REACTIONS (11)
  - HEPATOBILIARY DISEASE [None]
  - BRONCHOPNEUMONIA [None]
  - PLATELET COUNT DECREASED [None]
  - HAEMOGLOBIN DECREASED [None]
  - GAMMA-GLUTAMYLTRANSFERASE INCREASED [None]
  - NEUTROPHIL COUNT DECREASED [None]
  - BRONCHITIS [None]
  - ALANINE AMINOTRANSFERASE INCREASED [None]
  - WHITE BLOOD CELL COUNT DECREASED [None]
  - INFLUENZA [None]
  - LIVER DISORDER [None]
